FAERS Safety Report 9418880 (Version 1)
Quarter: 2013Q3

REPORT INFORMATION
  Report Type: Spontaneous
  Country: US (occurrence: US)
  Receive Date: 20130725
  Receipt Date: 20130725
  Transmission Date: 20140515
  Serious: No
  Sender: FDA-Public Use
  Company Number: US-BAYER-2013-089762

PATIENT
  Age: 88 Year
  Sex: Male
  Weight: 77 kg

DRUGS (5)
  1. ALEVE TABLET [Suspect]
     Indication: ARTHRITIS
     Dosage: 1 DF, PRN
     Route: 048
  2. BAYER ASPIRIN [Concomitant]
  3. LEVOTHYROXINE [Concomitant]
  4. TAMSULOSIN [Concomitant]
  5. DIOVAN [Concomitant]

REACTIONS (1)
  - Urticaria [Recovered/Resolved]
